FAERS Safety Report 9372468 (Version 1)
Quarter: 2013Q2

REPORT INFORMATION
  Report Type: Report from Study
  Country: US (occurrence: US)
  Receive Date: 20130627
  Receipt Date: 20130627
  Transmission Date: 20140414
  Serious: Yes (Other)
  Sender: FDA-Public Use
  Company Number: US-MYLANLABS-2012S1025272

PATIENT
  Age: 56 Year
  Sex: Male
  Weight: 113.4 kg

DRUGS (22)
  1. CLOZAPINE TABLETS [Suspect]
     Indication: SCHIZOPHRENIA
     Route: 048
     Dates: start: 20120925, end: 20121204
  2. MIRTAZAPINE [Concomitant]
  3. SINEMET [Concomitant]
     Indication: PARKINSON^S DISEASE
     Dosage: 25MG/100MG
     Route: 048
  4. ZOCOR [Concomitant]
     Indication: HYPERLIPIDAEMIA
     Route: 048
  5. GLIPIZIDE [Concomitant]
     Indication: DIABETES MELLITUS
  6. DITROPAN [Concomitant]
     Route: 048
  7. BISACODYL [Concomitant]
     Route: 048
  8. SYNTHROID [Concomitant]
     Indication: HYPOTHYROIDISM
     Route: 048
  9. ZANTAC [Concomitant]
     Indication: GASTROOESOPHAGEAL REFLUX DISEASE
     Route: 048
  10. ENALAPRIL [Concomitant]
     Route: 048
  11. ASA [Concomitant]
  12. HCTZ [Concomitant]
     Route: 048
  13. DEPAKOTE ER [Concomitant]
     Route: 048
  14. MIRTAZAPINE [Concomitant]
     Route: 048
  15. RISPERIDONE [Concomitant]
     Route: 048
  16. PERPHENAZINE [Concomitant]
     Route: 048
  17. LACTULOSE [Concomitant]
     Route: 048
  18. HYDROCHLOROTHIAZIDE [Concomitant]
     Route: 048
  19. IRON SULFATE [Concomitant]
     Route: 048
  20. GLYBURIDE [Concomitant]
     Route: 048
  21. METFORMIN [Concomitant]
     Route: 048
  22. SENNA PLUS /00142201/ [Concomitant]
     Dosage: 2 PO QPM
     Route: 048

REACTIONS (1)
  - Granulocytopenia [Not Recovered/Not Resolved]
